FAERS Safety Report 9240209 (Version 1)
Quarter: 2013Q2

REPORT INFORMATION
  Report Type: Spontaneous
  Country: US (occurrence: US)
  Receive Date: 20130418
  Receipt Date: 20130418
  Transmission Date: 20140414
  Serious: No
  Sender: FDA-Public Use
  Company Number: US-SANOFI-AVENTIS-2012SA024305

PATIENT
  Age: 3 Year
  Sex: Female

DRUGS (1)
  1. LOVENOX [Suspect]
     Indication: POSTOPERATIVE CARE
     Route: 065
     Dates: start: 20120315

REACTIONS (6)
  - Agitation [Unknown]
  - Insomnia [Unknown]
  - Swelling face [Unknown]
  - Hyperphagia [Unknown]
  - Injection site pain [Unknown]
  - Medication error [Unknown]
